FAERS Safety Report 4934032-1 (Version None)
Quarter: 2006Q1

REPORT INFORMATION
  Report Type: 
  Country: None (occurrence: None)
  Receive Date: 20060303
  Receipt Date: 20060217
  Transmission Date: 20060701
  Serious: Yes (Hospitalization)
  Sender: FDA-Public Use
  Company Number: 6020693

PATIENT
  Age: 50 Year
  Sex: Female

DRUGS (1)
  1. LEVOTHYROXINE SODIUM [Suspect]
     Indication: THYROIDECTOMY
     Dosage: ORAL
     Route: 048
     Dates: start: 19800101, end: 20060216

REACTIONS (3)
  - BLOOD THYROID STIMULATING HORMONE INCREASED [None]
  - DRUG INEFFECTIVE [None]
  - NODULE [None]
